FAERS Safety Report 12875472 (Version 1)
Quarter: 2016Q4

REPORT INFORMATION
  Report Type: Spontaneous
  Country: HR (occurrence: HR)
  Receive Date: 20161024
  Receipt Date: 20161024
  Transmission Date: 20170207
  Serious: Yes (Life-Threatening, Other)
  Sender: FDA-Public Use
  Company Number: HR-ASTRAZENECA-2016SF10601

PATIENT
  Sex: Male

DRUGS (1)
  1. QUETIAPINE. [Suspect]
     Active Substance: QUETIAPINE
     Dosage: 12.0G UNKNOWN
     Route: 048
     Dates: start: 20160304

REACTIONS (5)
  - Intentional overdose [Unknown]
  - Blood pressure abnormal [Unknown]
  - Suicide attempt [Unknown]
  - Heart rate abnormal [Unknown]
  - Somnolence [Unknown]

NARRATIVE: CASE EVENT DATE: 20160304
